FAERS Safety Report 9135733 (Version 2)
Quarter: 2014Q3

REPORT INFORMATION
  Report Type: Spontaneous
  Country: IN (occurrence: IN)
  Receive Date: 20130304
  Receipt Date: 20140702
  Transmission Date: 20150326
  Serious: Yes (Other)
  Sender: FDA-Public Use
  Company Number: PHHY2013IN019514

PATIENT
  Age: 30 Year
  Sex: Male

DRUGS (2)
  1. METHOTREXATE [Suspect]
     Active Substance: METHOTREXATE
     Indication: RHEUMATOID ARTHRITIS
     Dosage: 7.5 MG, QW
     Route: 058
  2. FOLATE [Concomitant]
     Active Substance: FOLATE SODIUM
     Dosage: 5 MG, UNK

REACTIONS (11)
  - Psychotic disorder [Recovered/Resolved]
  - Papilloedema [Recovering/Resolving]
  - Hallucination, auditory [Recovered/Resolved]
  - Benign intracranial hypertension [Recovering/Resolving]
  - Headache [Recovering/Resolving]
  - Vision blurred [Recovering/Resolving]
  - Sleep disorder [Recovered/Resolved]
  - Speech disorder [Recovered/Resolved]
  - CSF pressure increased [Recovering/Resolving]
  - Intracranial pressure increased [Recovering/Resolving]
  - Hallucination, visual [Recovered/Resolved]
